FAERS Safety Report 16836231 (Version 1)
Quarter: 2019Q3

REPORT INFORMATION
  Report Type: Spontaneous
  Country: US (occurrence: US)
  Receive Date: 20190921
  Receipt Date: 20190921
  Transmission Date: 20191005
  Serious: Yes (Hospitalization, Other)
  Sender: FDA-Public Use
  Company Number: US-IPSEN BIOPHARMACEUTICALS, INC.-2019-17209

PATIENT
  Sex: Female

DRUGS (4)
  1. SOMATULINE DEPOT [Suspect]
     Active Substance: LANREOTIDE ACETATE
     Indication: CARCINOID TUMOUR
     Dosage: SITE: SADDLE BAGS ON MY HIPS AREA
     Route: 058
     Dates: start: 201506
  2. OCTREOTIDE. [Concomitant]
     Active Substance: OCTREOTIDE
  3. PEPCID [Concomitant]
     Active Substance: FAMOTIDINE
  4. VALTREX [Concomitant]
     Active Substance: VALACYCLOVIR HYDROCHLORIDE
     Indication: HERPES VIRUS INFECTION

REACTIONS (7)
  - Sepsis [Not Recovered/Not Resolved]
  - Oedema [Not Recovered/Not Resolved]
  - Product dose omission [Unknown]
  - Off label use [Unknown]
  - Injection site extravasation [Recovered/Resolved]
  - Cardiac infection [Not Recovered/Not Resolved]
  - Pulmonary embolism [Unknown]

NARRATIVE: CASE EVENT DATE: 2019
